FAERS Safety Report 8308001-8 (Version None)
Quarter: 2012Q2

REPORT INFORMATION
  Report Type: 
  Country: None (occurrence: None)
  Receive Date: 20120424
  Receipt Date: 20120416
  Transmission Date: 20120825
  Serious: Yes (Other)
  Sender: FDA-Public Use
  Company Number: JP-GLAXOSMITHKLINE-B0796949A

PATIENT
  Age: 38 Year
  Sex: Female
  Weight: 42 kg

DRUGS (14)
  1. LENDORMIN [Concomitant]
     Route: 048
  2. ROHYPNOL [Concomitant]
     Route: 048
  3. PURSENNID [Concomitant]
     Route: 048
  4. DEPAS [Concomitant]
     Route: 048
  5. PROMAZINE HYDROCHLORIDE [Concomitant]
     Route: 048
  6. ROZEREM [Concomitant]
     Route: 048
  7. CEFAZOLIN SODIUM [Concomitant]
     Route: 048
  8. LAMICTAL [Suspect]
     Indication: BIPOLAR II DISORDER
     Dosage: 25MG PER DAY
     Route: 048
     Dates: start: 20111012, end: 20111017
  9. VITAMIN B12 [Concomitant]
     Route: 048
  10. LAMICTAL [Suspect]
     Dosage: 50MG PER DAY
     Route: 048
     Dates: start: 20111018, end: 20111024
  11. MAGNESIUM SULFATE [Concomitant]
     Route: 048
  12. AMOBAN [Concomitant]
     Route: 048
  13. EVAMYL [Concomitant]
     Route: 048
  14. LULLAN [Concomitant]
     Route: 048

REACTIONS (8)
  - PYREXIA [None]
  - RASH [None]
  - ASPARTATE AMINOTRANSFERASE INCREASED [None]
  - FLUSHING [None]
  - ERYTHEMA [None]
  - DRUG RASH WITH EOSINOPHILIA AND SYSTEMIC SYMPTOMS [None]
  - FACE OEDEMA [None]
  - BLOOD CREATINE PHOSPHOKINASE INCREASED [None]
